FAERS Safety Report 25946334 (Version 1)
Quarter: 2025Q4

REPORT INFORMATION
  Report Type: Spontaneous
  Country: MX (occurrence: MX)
  Receive Date: 20251022
  Receipt Date: 20251022
  Transmission Date: 20260118
  Serious: Yes (Other)
  Sender: SANDOZ
  Company Number: MX-002147023-NVSC2025MX157791

PATIENT
  Age: 84 Year
  Sex: Female

DRUGS (3)
  1. EXELON [Suspect]
     Active Substance: RIVASTIGMINE TARTRATE
     Dosage: 0.5 DF, QD, (0.5 DOSAGE FORM, QD (EXTENDED RELEASE)
     Route: 062
     Dates: start: 202508
  2. EXELON [Suspect]
     Active Substance: RIVASTIGMINE TARTRATE
     Dosage: 1 DF, QD, ( 1 DOSAGE FORM, QD (EXTENDED RELEASE))
     Route: 062
     Dates: start: 20230913
  3. EXELON [Suspect]
     Active Substance: RIVASTIGMINE TARTRATE
     Indication: Product used for unknown indication
     Dosage: 1 DOSAGE FORM, QD (EXTENDED RELEASE)
     Route: 062
     Dates: start: 2022

REACTIONS (5)
  - Hip fracture [Recovered/Resolved]
  - Hip fracture [Unknown]
  - Feeling of relaxation [Unknown]
  - Aggression [Unknown]
  - Wrong technique in product usage process [Unknown]

NARRATIVE: CASE EVENT DATE: 20220101
